FAERS Safety Report 8927663 (Version 2)
Quarter: 2012Q4

REPORT INFORMATION
  Report Type: 
  Country: JP (occurrence: JP)
  Receive Date: 20121127
  Receipt Date: 20121204
  Transmission Date: 20130627
  Serious: Yes (Other)
  Sender: FDA-Public Use
  Company Number: JP-ASTELLAS-2012JP010907

PATIENT
  Age: 60 Year
  Sex: Female

DRUGS (1)
  1. BETANIS [Suspect]
     Indication: HYPERTONIC BLADDER
     Dosage: UNK
     Route: 048
     Dates: start: 201111

REACTIONS (1)
  - Retinal vein occlusion [Recovering/Resolving]
